FAERS Safety Report 7214547-6 (Version None)
Quarter: 2011Q1

REPORT INFORMATION
  Report Type: 
  Country: None (occurrence: None)
  Receive Date: 20110107
  Receipt Date: 20101202
  Transmission Date: 20110831
  Serious: Yes (Hospitalization, Other)
  Sender: FDA-Public Use
  Company Number: US-BAYER-201013597NA

PATIENT
  Sex: Female
  Weight: 72.273 kg

DRUGS (4)
  1. SARAFEM [Concomitant]
  2. YAZ [Suspect]
     Indication: PREMENSTRUAL SYNDROME
     Dosage: UNK
     Route: 048
     Dates: start: 20060101, end: 20080101
  3. YASMIN [Suspect]
     Indication: PRODUCT USED FOR UNKNOWN INDICATION
     Dosage: UNK
     Route: 048
     Dates: start: 20041229, end: 20050326
  4. PROTONIX [Concomitant]

REACTIONS (5)
  - SINUS TACHYCARDIA [None]
  - ABDOMINAL PAIN UPPER [None]
  - CARDIAC FLUTTER [None]
  - BILIARY DYSKINESIA [None]
  - CHOLECYSTITIS CHRONIC [None]
